FAERS Safety Report 5023430-6 (Version None)
Quarter: 2006Q2

REPORT INFORMATION
  Report Type: 
  Country: None (occurrence: None)
  Receive Date: 20060606
  Receipt Date: 20060526
  Transmission Date: 20061013
  Serious: Yes (Other)
  Sender: FDA-Public Use
  Company Number: 2006070227

PATIENT
  Sex: Female

DRUGS (1)
  1. MINOXIDIL [Suspect]
     Indication: ALOPECIA
     Dosage: 3 ^SQUIRTS^ ONCE DAILY, TOPICAL
     Route: 061
     Dates: start: 20000101

REACTIONS (1)
  - MALIGNANT MELANOMA [None]
